FAERS Safety Report 5306925-7 (Version None)
Quarter: 2007Q2

REPORT INFORMATION
  Report Type: 
  Country: None (occurrence: None)
  Receive Date: 20070425
  Receipt Date: 20070424
  Transmission Date: 20071010
  Serious: Yes (Life-Threatening)
  Sender: FDA-Public Use
  Company Number: IT-BRISTOL-MYERS SQUIBB COMPANY-13758206

PATIENT
  Age: 56 Year
  Sex: Female

DRUGS (1)
  1. DASATINIB [Suspect]
     Dates: start: 20061013

REACTIONS (1)
  - DIVERTICULITIS [None]
